FAERS Safety Report 18740668 (Version 1)
Quarter: 2021Q1

REPORT INFORMATION
  Report Type: Spontaneous
  Country: US (occurrence: US)
  Receive Date: 20210114
  Receipt Date: 20210114
  Transmission Date: 20210419
  Serious: Yes (Death)
  Sender: FDA-Public Use
  Company Number: None

PATIENT
  Age: 70 Year
  Sex: Female
  Weight: 58.7 kg

DRUGS (1)
  1. BAMLANIVIMAB. [Suspect]
     Active Substance: BAMLANIVIMAB
     Indication: COVID-19
     Dosage: ?          OTHER FREQUENCY:ONCE;?
     Route: 041
     Dates: start: 20210108, end: 20210108

REACTIONS (8)
  - International normalised ratio increased [None]
  - Apnoea [None]
  - Subarachnoid haemorrhage [None]
  - Intraventricular haemorrhage [None]
  - Pulseless electrical activity [None]
  - Death [None]
  - Pupil fixed [None]
  - Respiratory disorder [None]

NARRATIVE: CASE EVENT DATE: 20210110
